FAERS Safety Report 9042805 (Version 1)
Quarter: 2013Q1

REPORT INFORMATION
  Report Type: Report from Study
  Country: US (occurrence: US)
  Receive Date: 20130129
  Receipt Date: 20130129
  Transmission Date: 20140127
  Serious: No
  Sender: FDA-Public Use
  Company Number: US-ABBOTT-12P-163-0910039-00

PATIENT
  Age: 67 Year
  Sex: Female

DRUGS (16)
  1. HUMIRA 40 MG/ 0.8 ML PRE-FILLED SYRINGE [Suspect]
     Indication: CROHN^S DISEASE
     Dates: start: 200901
  2. OMEPRAZOLE [Concomitant]
     Indication: GASTROINTESTINAL DISORDER
  3. OMEPRAZOLE [Concomitant]
     Indication: GASTRIC DISORDER
  4. LOSARTAN [Concomitant]
     Indication: HYPERTENSION
     Route: 048
  5. HYDROCODONE [Concomitant]
     Indication: ARTHRALGIA
     Dosage: 7.5 MG/325 MG
  6. HYDROCODONE [Concomitant]
     Indication: ARTHRALGIA
  7. FENTANYL [Concomitant]
     Indication: ARTHRITIS
     Dosage: PATCH
  8. FENTANYL [Concomitant]
     Indication: ARTHRITIS
  9. WARFARIN [Concomitant]
     Indication: PULMONARY EMBOLISM
     Dosage: 3 MG 5 DAYS/WEEK, 4 MG 2 DAYS/WEEK---DOSE CHANGES FREQUENTLY
  10. WARFARIN [Concomitant]
     Indication: PERIPHERAL EMBOLISM
  11. FOLIC ACID [Concomitant]
     Indication: VITAMIN SUPPLEMENTATION
  12. VITAMIN D3 [Concomitant]
     Indication: VITAMIN SUPPLEMENTATION
  13. B12 [Concomitant]
     Indication: VITAMIN SUPPLEMENTATION
  14. CALCIUM +VIT D [Concomitant]
     Indication: VITAMIN SUPPLEMENTATION
  15. NIACIN [Concomitant]
     Indication: PRODUCT USED FOR UNKNOWN INDICATION
  16. FISH OIL [Concomitant]
     Indication: PRODUCT USED FOR UNKNOWN INDICATION

REACTIONS (6)
  - Pneumonia [Not Recovered/Not Resolved]
  - Crohn^s disease [Unknown]
  - Decreased appetite [Unknown]
  - Abdominal discomfort [Unknown]
  - Ulcer [Unknown]
  - Anxiety [Unknown]
